FAERS Safety Report 5471406-7 (Version None)
Quarter: 2007Q3

REPORT INFORMATION
  Report Type: 
  Country: None (occurrence: None)
  Receive Date: 20070928
  Receipt Date: 20061004
  Transmission Date: 20080115
  Serious: No
  Sender: FDA-Public Use
  Company Number: US-BRISTOL-MYERS SQUIBB COMPANY-13530829

PATIENT
  Age: 68 Year
  Sex: Female
  Weight: 92 kg

DRUGS (10)
  1. DEFINITY [Suspect]
     Indication: ECHOCARDIOGRAM
     Route: 042
     Dates: start: 20061004, end: 20061004
  2. TRAZODONE HCL [Concomitant]
  3. CRESTOR [Concomitant]
  4. COUMADIN [Concomitant]
  5. POTASSIUM CHLORIDE [Concomitant]
  6. DITROPAN [Concomitant]
  7. GLIPIZIDE [Concomitant]
  8. HYDROCHLOROTHIAZIDE [Concomitant]
  9. METOPROLOL SUCCINATE [Concomitant]
  10. COZAAR [Concomitant]

REACTIONS (3)
  - ARTHRALGIA [None]
  - BACK PAIN [None]
  - URINARY INCONTINENCE [None]
